FAERS Safety Report 13075899 (Version 1)
Quarter: 2016Q4

REPORT INFORMATION
  Report Type: Spontaneous
  Country: US (occurrence: US)
  Receive Date: 20161230
  Receipt Date: 20161230
  Transmission Date: 20170207
  Serious: Yes (Death)
  Sender: FDA-Public Use
  Company Number: US-ELI_LILLY_AND_COMPANY-US201612010495

PATIENT

DRUGS (3)
  1. CETUXIMAB [Suspect]
     Active Substance: CETUXIMAB
     Indication: NEOPLASM
     Dosage: 400 MG/M2, UNKNOWN
     Route: 042
  2. REGORAFENIB [Suspect]
     Active Substance: REGORAFENIB
     Indication: NEOPLASM
     Dosage: 100 MG, QD
     Route: 065
  3. CETUXIMAB [Suspect]
     Active Substance: CETUXIMAB
     Dosage: 250 MG/M2, WEEKLY (1/W)
     Route: 042

REACTIONS (1)
  - Hepatic failure [Fatal]
